FAERS Safety Report 4935190-5 (Version None)
Quarter: 2006Q1

REPORT INFORMATION
  Report Type: 
  Country: None (occurrence: None)
  Receive Date: 20060302
  Receipt Date: 20060223
  Transmission Date: 20060701
  Serious: Yes (Life-Threatening, Hospitalization)
  Sender: FDA-Public Use
  Company Number: S06-USA-00648-01

PATIENT
  Age: 30 Year
  Sex: Male
  Weight: 126.5536 kg

DRUGS (4)
  1. LEXAPRO [Suspect]
     Indication: MAJOR DEPRESSION
     Dosage: 10 MG QD PO
     Route: 048
     Dates: start: 20030101, end: 20060214
  2. LISINOPRIL [Concomitant]
  3. HYDROCHLOROTHIAZIDE [Concomitant]
  4. LORAZEPAM [Concomitant]

REACTIONS (6)
  - CONVULSION [None]
  - HYPONATRAEMIA [None]
  - IATROGENIC INJURY [None]
  - INAPPROPRIATE ANTIDIURETIC HORMONE SECRETION [None]
  - INFLUENZA LIKE ILLNESS [None]
  - RESPIRATORY ARREST [None]
